FAERS Safety Report 10989316 (Version 2)
Quarter: 2016Q4

REPORT INFORMATION
  Report Type: Report from Study
  Country: IN (occurrence: IN)
  Receive Date: 20150406
  Receipt Date: 20161102
  Transmission Date: 20170206
  Serious: Yes (Death, Hospitalization, Other)
  Sender: FDA-Public Use
  Company Number: IN-ROCHE-1559927

PATIENT
  Age: 53 Year
  Sex: Female
  Weight: 75 kg

DRUGS (3)
  1. AVASTIN [Suspect]
     Active Substance: BEVACIZUMAB
     Indication: BRAIN NEOPLASM
     Dosage: STOP DATE - UNKNOWN?START DATE WAS 14/MAR/2015
     Route: 042
  2. LEVIPIL [Suspect]
     Active Substance: LEVETIRACETAM
     Indication: BRAIN NEOPLASM
     Route: 048
     Dates: end: 20150314
  3. DEXAMETHASONE (ORAL) [Suspect]
     Active Substance: DEXAMETHASONE
     Indication: BRAIN NEOPLASM
     Route: 048
     Dates: end: 20150314

REACTIONS (5)
  - Platelet count decreased [Unknown]
  - Drug ineffective [Fatal]
  - White blood cell count decreased [Unknown]
  - Diarrhoea [Unknown]
  - Dyspnoea [Fatal]

NARRATIVE: CASE EVENT DATE: 2015
